FAERS Safety Report 7964289-4 (Version None)
Quarter: 2011Q4

REPORT INFORMATION
  Report Type: 
  Country: None (occurrence: None)
  Receive Date: 20111208
  Receipt Date: 20111130
  Transmission Date: 20120403
  Serious: Yes (Other)
  Sender: FDA-Public Use
  Company Number: US-ASTELLAS-2011US007120

PATIENT
  Sex: Female
  Weight: 29 kg

DRUGS (5)
  1. ALBUTEROL [Concomitant]
     Indication: ASTHMA
     Dosage: 2 DF, UID/QD
     Route: 055
     Dates: start: 20060929
  2. TRIAMCINOLONE [Concomitant]
     Indication: DERMATITIS ATOPIC
     Dosage: 0.1 %, BID
     Route: 061
     Dates: start: 20110927
  3. TACROLIMUS [Suspect]
     Indication: DERMATITIS ATOPIC
     Dosage: 0.03 %, UID/QD
     Route: 061
     Dates: start: 20020601
  4. CLARITIN [Concomitant]
     Indication: HYPERSENSITIVITY
     Dosage: 10 ML, UID/QD
     Route: 048
     Dates: start: 20080813
  5. HYDROCORTISONE [Concomitant]
     Indication: DERMATITIS ATOPIC
     Dosage: 2.5 %, UID/QD
     Route: 061
     Dates: start: 20020312

REACTIONS (1)
  - UMBILICAL HERNIA [None]
